FAERS Safety Report 20963590 (Version 3)
Quarter: 2022Q3

REPORT INFORMATION
  Report Type: Report from Study
  Country: US (occurrence: US)
  Receive Date: 20220615
  Receipt Date: 20220623
  Transmission Date: 20221026
  Serious: Yes (Death)
  Sender: FDA-Public Use
  Company Number: US-NOVARTISPH-NVSC2022US137862

PATIENT
  Age: 91 Year
  Sex: Female

DRUGS (2)
  1. ENTRESTO [Suspect]
     Active Substance: SACUBITRIL\VALSARTAN
     Indication: Left ventricular dysfunction
     Dosage: 1 DOSAGE FORM (24/26 MG), BID
     Route: 048
     Dates: start: 20210614, end: 20210728
  2. ENTRESTO [Suspect]
     Active Substance: SACUBITRIL\VALSARTAN
     Dosage: UNK (RESTARTED FROM HOLD)
     Route: 065
     Dates: start: 20210818

REACTIONS (2)
  - Death [Fatal]
  - Hypotension [Unknown]

NARRATIVE: CASE EVENT DATE: 20211002
